FAERS Safety Report 9009796 (Version 1)
Quarter: 2013Q1

REPORT INFORMATION
  Report Type: Spontaneous
  Country: US (occurrence: US)
  Receive Date: 20130111
  Receipt Date: 20130111
  Transmission Date: 20140127
  Serious: Yes (Death)
  Sender: FDA-Public Use
  Company Number: GXBR2013US000447

PATIENT
  Sex: Male

DRUGS (9)
  1. ALPRAZOLAM TABLETS USP [Suspect]
     Dosage: UNK DF, UNK
     Dates: start: 200907
  2. CITALOPRAM HYDROBROMIDE TABLETS, 40 MG (PUREPAC) [Interacting]
     Dosage: UNK DF, UNK
     Dates: start: 200907
  3. MIRTAZAPINE TABLETS [Interacting]
     Dosage: UNK
     Dates: start: 200907
  4. CLONAZEPAM TABLETS, USP [Interacting]
     Dosage: UNK DF, UNK
     Dates: start: 200907
  5. TRAZODONE HCL TABLETS USP [Interacting]
     Dosage: UNK DF, UNK
     Dates: start: 200907
  6. DIAZEPAM TABLETS USP (PUREPAC) [Interacting]
     Dosage: UNK DF, UNK
     Dates: start: 200907
  7. TEMAZEPAM CAPSULES USP [Interacting]
     Dosage: UNK DF, UNK
     Dates: start: 200907
  8. SEROQUEL [Interacting]
     Dosage: UNK DF, UNK
     Dates: start: 200907
  9. SOMNOTE [Interacting]
     Dosage: UNK DF, UNK
     Dates: start: 200907

REACTIONS (4)
  - Completed suicide [Fatal]
  - Suicidal ideation [Fatal]
  - Drug interaction [Not Recovered/Not Resolved]
  - Fall [None]
